FAERS Safety Report 7071864-0 (Version None)
Quarter: 2010Q4

REPORT INFORMATION
  Report Type: 
  Country: None (occurrence: None)
  Receive Date: 20101028
  Receipt Date: 20101028
  Transmission Date: 20110411
  Serious: Yes (Hospitalization)
  Sender: FDA-Public Use
  Company Number: None

PATIENT
  Age: 49 Year
  Sex: Male

DRUGS (6)
  1. GEODON [Suspect]
     Indication: BIPOLAR II DISORDER
     Dosage: 40 MG (2 CAPS) ONCE PER DAY BY MOUTH
     Route: 048
     Dates: start: 20100922, end: 20101014
  2. GEODON [Suspect]
     Indication: GENERALISED ANXIETY DISORDER
     Dosage: 40 MG (2 CAPS) ONCE PER DAY BY MOUTH
     Route: 048
     Dates: start: 20100922, end: 20101014
  3. GEODON [Suspect]
     Indication: BIPOLAR II DISORDER
     Dosage: 80 MG (1 CAPS) ONCE PER DAY BY MOUTH
     Route: 048
     Dates: start: 20100922, end: 20101014
  4. GEODON [Suspect]
     Indication: GENERALISED ANXIETY DISORDER
     Dosage: 80 MG (1 CAPS) ONCE PER DAY BY MOUTH
     Route: 048
     Dates: start: 20100922, end: 20101014
  5. LORAZEPAM [Concomitant]
  6. CAFFEINE [Concomitant]

REACTIONS (3)
  - AGGRESSION [None]
  - SELF INJURIOUS BEHAVIOUR [None]
  - STRESS [None]
